FAERS Safety Report 8602854-1 (Version None)
Quarter: 2012Q3

REPORT INFORMATION
  Report Type: 
  Country: None (occurrence: None)
  Receive Date: 20120817
  Receipt Date: 20120815
  Transmission Date: 20120928
  Serious: Yes (Hospitalization, Disabling, Other)
  Sender: FDA-Public Use
  Company Number: US-GLAXOSMITHKLINE-A0984612A

PATIENT
  Age: 64 Year
  Sex: Male

DRUGS (9)
  1. SORIATANE [Suspect]
     Indication: PSORIASIS
     Dosage: 20MG SEE DOSAGE TEXT
     Route: 048
     Dates: start: 20120502, end: 20120710
  2. ENBREL [Suspect]
     Indication: PSORIASIS
     Dosage: 50MG WEEKLY
     Dates: start: 20120101
  3. DIOVAN [Concomitant]
     Dosage: 160MG TWICE PER DAY
  4. NARROWBAND UV-B PHOTOTHERAPY [Concomitant]
  5. ASPIRIN [Concomitant]
     Dosage: 81MG PER DAY
  6. M.V.I. [Concomitant]
  7. ASCORBIC ACID [Concomitant]
     Dosage: 500MG PER DAY
  8. VITAMIN D [Concomitant]
     Dosage: 1000UD PER DAY
  9. IBUPROFEN [Concomitant]
     Dosage: 400MG AS REQUIRED

REACTIONS (2)
  - RETINAL ARTERY THROMBOSIS [None]
  - VISUAL ACUITY REDUCED [None]
